FAERS Safety Report 10991068 (Version 1)
Quarter: 2015Q2

REPORT INFORMATION
  Report Type: Spontaneous
  Country: BR (occurrence: BR)
  Receive Date: 20150406
  Receipt Date: 20150406
  Transmission Date: 20150821
  Serious: Yes (Other)
  Sender: FDA-Public Use
  Company Number: BR-ELI_LILLY_AND_COMPANY-BR201407002084

PATIENT
  Age: 34 Year
  Sex: Female

DRUGS (3)
  1. HUMALOG [Suspect]
     Active Substance: INSULIN LISPRO
     Dosage: UNK, UNKNOWN
     Route: 058
     Dates: start: 2012
  2. HUMALOG [Suspect]
     Active Substance: INSULIN LISPRO
     Dosage: 3 IU, EACH EVENING
     Route: 058
     Dates: start: 2012
  3. HUMALOG [Suspect]
     Active Substance: INSULIN LISPRO
     Indication: DIABETES MELLITUS
     Dosage: 7 IU, TID
     Route: 058
     Dates: start: 2012

REACTIONS (4)
  - Blood glucose increased [Recovered/Resolved]
  - Lactation disorder [Unknown]
  - Exposure during pregnancy [Not Recovered/Not Resolved]
  - Premature separation of placenta [Unknown]
